FAERS Safety Report 19221777 (Version 3)
Quarter: 2021Q2

REPORT INFORMATION
  Report Type: Spontaneous
  Country: IT (occurrence: IT)
  Receive Date: 20210505
  Receipt Date: 20210527
  Transmission Date: 20210717
  Serious: Yes (Death)
  Sender: FDA-Public Use
  Company Number: IT-ALLERGAN-2116977US

PATIENT
  Sex: Male

DRUGS (2)
  1. CARBOLITHIUM [Interacting]
     Active Substance: LITHIUM CARBONATE
     Indication: DEPRESSION
     Dosage: 1200 MG, QD
     Route: 048
     Dates: start: 20010413, end: 20210413
  2. ESCITALOPRAM OXALATE ? BP [Suspect]
     Active Substance: ESCITALOPRAM OXALATE
     Indication: DEPRESSION
     Dosage: 5 DF, QD; 20 MG/ML  (ORAL DROPS , SOLUTION)
     Route: 048
     Dates: start: 20210407, end: 20210410

REACTIONS (9)
  - Death [Fatal]
  - Psychomotor hyperactivity [Fatal]
  - Seizure [Fatal]
  - Poisoning [Fatal]
  - Underdose [Unknown]
  - Serotonin syndrome [Fatal]
  - Tremor [Fatal]
  - Blood creatine phosphokinase increased [Fatal]
  - Drug interaction [Fatal]

NARRATIVE: CASE EVENT DATE: 20210413
